FAERS Safety Report 18581694 (Version 4)
Quarter: 2021Q1

REPORT INFORMATION
  Report Type: Report from Study
  Country: US (occurrence: US)
  Receive Date: 20201205
  Receipt Date: 20210122
  Transmission Date: 20210419
  Serious: No
  Sender: FDA-Public Use
  Company Number: NVSC2020US324609

PATIENT
  Sex: Male

DRUGS (2)
  1. ENTRESTO [Suspect]
     Active Substance: SACUBITRIL\VALSARTAN
     Indication: PRODUCT USED FOR UNKNOWN INDICATION
     Dosage: 100 MG, BID (49/51 MG)
     Route: 048
     Dates: start: 202011
  2. ENTRESTO [Suspect]
     Active Substance: SACUBITRIL\VALSARTAN
     Dosage: 100 MG, BID (49/51 MG)
     Route: 048

REACTIONS (8)
  - Fall [Recovering/Resolving]
  - Swelling [Recovering/Resolving]
  - Fluid retention [Not Recovered/Not Resolved]
  - Pyrexia [Unknown]
  - Dizziness [Recovering/Resolving]
  - Influenza [Unknown]
  - Weight fluctuation [Not Recovered/Not Resolved]
  - Muscle twitching [Recovering/Resolving]
